FAERS Safety Report 8360669-6 (Version None)
Quarter: 2012Q2

REPORT INFORMATION
  Report Type: 
  Country: None (occurrence: None)
  Receive Date: 20120515
  Receipt Date: 20120503
  Transmission Date: 20120825
  Serious: Yes (Hospitalization)
  Sender: FDA-Public Use
  Company Number: US-ACTELION-A-US2012-63404

PATIENT

DRUGS (2)
  1. ASPIRIN [Concomitant]
  2. TRACLEER [Suspect]
     Indication: PULMONARY ARTERIAL HYPERTENSION
     Dosage: UNK MG, UNK
     Route: 048
     Dates: start: 20111205

REACTIONS (4)
  - ANGIOPLASTY [None]
  - CORONARY ARTERIAL STENT INSERTION [None]
  - PALLOR [None]
  - DYSPNOEA [None]
